FAERS Safety Report 10443310 (Version 3)
Quarter: 2016Q4

REPORT INFORMATION
  Report Type: Report from Study
  Country: US (occurrence: US)
  Receive Date: 20140910
  Receipt Date: 20161010
  Transmission Date: 20170206
  Serious: Yes (Other)
  Sender: FDA-Public Use
  Company Number: US-ROCHE-1420374

PATIENT
  Sex: Male

DRUGS (7)
  1. ANDROGEL [Concomitant]
     Active Substance: TESTOSTERONE
  2. TESTOSTERONE. [Concomitant]
     Active Substance: TESTOSTERONE
     Route: 065
  3. FLOMAX [Concomitant]
     Active Substance: TAMSULOSIN HYDROCHLORIDE
  4. NUTROPIN AQ [Suspect]
     Active Substance: SOMATROPIN
     Indication: GROWTH HORMONE DEFICIENCY
     Route: 058
  5. CELEXA [Concomitant]
     Active Substance: CITALOPRAM HYDROBROMIDE
     Indication: DEPRESSION
  6. TESTIM [Concomitant]
     Active Substance: TESTOSTERONE
     Route: 065
  7. NUTROPIN AQ [Suspect]
     Active Substance: SOMATROPIN
     Indication: HYPOTHALAMO-PITUITARY DISORDER
     Dosage: 0.3/0.4MG ALTERNATING DAYS, PEN.
     Route: 058

REACTIONS (14)
  - Fatigue [Not Recovered/Not Resolved]
  - Insulin-like growth factor increased [Unknown]
  - Blood testosterone decreased [Unknown]
  - Gastric ulcer [Unknown]
  - Dry mouth [Unknown]
  - Prostate infection [Unknown]
  - Rhinorrhoea [Unknown]
  - Amnesia [Not Recovered/Not Resolved]
  - Nasal congestion [Unknown]
  - Depression [Unknown]
  - Back pain [Unknown]
  - Asthenia [Unknown]
  - Glossodynia [Unknown]
  - Fatigue [Unknown]
